FAERS Safety Report 10065374 (Version 1)
Quarter: 2014Q2

REPORT INFORMATION
  Report Type: Spontaneous
  Country: US (occurrence: US)
  Receive Date: 20140408
  Receipt Date: 20140408
  Transmission Date: 20141212
  Serious: Yes (Other)
  Sender: FDA-Public Use
  Company Number: US-ASTRAZENECA-2014SE22746

PATIENT
  Age: 69 Year
  Sex: Male
  Weight: 81.6 kg

DRUGS (4)
  1. LISINOPRIL [Suspect]
     Indication: DIURETIC THERAPY
     Route: 048
     Dates: start: 2006
  2. CRESTOR [Suspect]
     Indication: BLOOD PRESSURE ABNORMAL
     Route: 048
     Dates: start: 2004
  3. CRESTOR [Suspect]
     Indication: BLOOD CHOLESTEROL ABNORMAL
     Route: 048
     Dates: start: 2004
  4. HYDROCHLOROTHIAZIDE [Concomitant]
     Indication: BLOOD CHOLESTEROL ABNORMAL
     Route: 048
     Dates: start: 2004

REACTIONS (12)
  - VIIth nerve paralysis [Unknown]
  - Neck pain [Not Recovered/Not Resolved]
  - Ligament sprain [Unknown]
  - Lip pruritus [Unknown]
  - Joint crepitation [Unknown]
  - Coeliac disease [Unknown]
  - Musculoskeletal discomfort [Unknown]
  - Headache [Not Recovered/Not Resolved]
  - Arthralgia [Unknown]
  - Hypersensitivity [Unknown]
  - Pyrexia [Unknown]
  - Intentional product misuse [Unknown]
